FAERS Safety Report 8817932 (Version 1)
Quarter: 2012Q4

REPORT INFORMATION
  Report Type: 
  Country: SG (occurrence: SG)
  Receive Date: 20121002
  Receipt Date: 20121002
  Transmission Date: 20130627
  Serious: Yes (Other)
  Sender: FDA-Public Use
  Company Number: SG-ABBOTT-12P-141-0989819-00

PATIENT
  Age: 47 Year
  Sex: Male

DRUGS (2)
  1. KLACID [Suspect]
     Indication: PRODUCT USED FOR UNKNOWN INDICATION
     Route: 048
     Dates: start: 20120322, end: 20120322
  2. CETRIZINE [Suspect]
     Indication: PRODUCT USED FOR UNKNOWN INDICATION

REACTIONS (2)
  - Angioedema [Recovered/Resolved]
  - Eye swelling [Recovered/Resolved]
